FAERS Safety Report 25842072 (Version 1)
Quarter: 2025Q3

REPORT INFORMATION
  Report Type: Spontaneous
  Country: JP (occurrence: JP)
  Receive Date: 20250924
  Receipt Date: 20250924
  Transmission Date: 20251020
  Serious: Yes (Other)
  Sender: EISAI
  Company Number: JP-Eisai Medical Research-EC-2023-139513

PATIENT
  Age: 54 Year
  Sex: Male

DRUGS (5)
  1. LENVIMA [Suspect]
     Active Substance: LENVATINIB
     Indication: Renal cell carcinoma
     Route: 048
     Dates: start: 202210, end: 202212
  2. LENVIMA [Suspect]
     Active Substance: LENVATINIB
     Route: 048
     Dates: start: 202212, end: 2023
  3. LENVIMA [Suspect]
     Active Substance: LENVATINIB
     Route: 048
     Dates: start: 2023
  4. KEYTRUDA [Suspect]
     Active Substance: PEMBROLIZUMAB
     Indication: Renal cell carcinoma
     Route: 042
     Dates: start: 202210, end: 2023
  5. LEVOTHYROXINE [Concomitant]
     Active Substance: LEVOTHYROXINE
     Indication: Hypothyroidism

REACTIONS (1)
  - Adrenal insufficiency [Unknown]

NARRATIVE: CASE EVENT DATE: 20230101
